FAERS Safety Report 6598568-2 (Version None)
Quarter: 2010Q1

REPORT INFORMATION
  Report Type: 
  Country: None (occurrence: None)
  Receive Date: 20100224
  Receipt Date: 20100210
  Transmission Date: 20100710
  Serious: Yes (Hospitalization, Other)
  Sender: FDA-Public Use
  Company Number: US-RANBAXY-2010US-31130

PATIENT

DRUGS (10)
  1. VERAPAMIL [Suspect]
     Indication: DRUG USE FOR UNKNOWN INDICATION
     Dosage: 20 TABLETS OF 40 MG (ONCE)
     Route: 065
  2. DIAZEPAM [Suspect]
     Indication: DRUG USE FOR UNKNOWN INDICATION
     Dosage: 15 TABLETS OF 5 MG
     Route: 065
  3. HYDROCHLOROTHIAZIDE [Suspect]
     Indication: DRUG USE FOR UNKNOWN INDICATION
     Dosage: 750 MG ONCE
     Route: 065
  4. INSULIN [Suspect]
     Indication: DRUG USE FOR UNKNOWN INDICATION
     Dosage: 200 IU IN EACH LEG (TOTAL 400 IU) (ONCE)
     Route: 058
  5. MEDIGOXIN [Suspect]
     Indication: DRUG USE FOR UNKNOWN INDICATION
     Dosage: 40 TABLETS OF 0.1 MG (ONCE)
     Route: 065
  6. MEDAZEPAM [Suspect]
     Indication: DRUG USE FOR UNKNOWN INDICATION
     Dosage: 25 CAPSULES OF 10 MG (ONCE)
     Route: 065
  7. BUTAMIRATE [Suspect]
     Indication: DRUG USE FOR UNKNOWN INDICATION
     Dosage: 15 TABLETS OF 5 MG
     Route: 065
  8. TRIAMTERENE [Suspect]
     Indication: DRUG USE FOR UNKNOWN INDICATION
     Dosage: 1500 MG ONCE
     Route: 065
  9. CEPHALEXIN [Concomitant]
     Indication: URINARY TRACT INFECTION
     Route: 065
  10. GENTAMICIN [Concomitant]
     Indication: PSEUDOMONAS INFECTION
     Route: 065

REACTIONS (10)
  - ALCOHOL USE [None]
  - ATRIAL FIBRILLATION [None]
  - ATRIAL TACHYCARDIA [None]
  - ATRIOVENTRICULAR BLOCK COMPLETE [None]
  - BUNDLE BRANCH BLOCK LEFT [None]
  - DEHYDRATION [None]
  - DRUG TOXICITY [None]
  - HYPOGLYCAEMIC COMA [None]
  - RENAL FAILURE ACUTE [None]
  - SUICIDE ATTEMPT [None]
